FAERS Safety Report 9839393 (Version 4)
Quarter: 2014Q1

REPORT INFORMATION
  Report Type: Report from Study
  Country: CO (occurrence: CO)
  Receive Date: 20140123
  Receipt Date: 20140318
  Transmission Date: 20141002
  Serious: Yes (Other)
  Sender: FDA-Public Use
  Company Number: CO-ROCHE-1338117

PATIENT
  Sex: 0

DRUGS (8)
  1. XOLAIR [Suspect]
     Indication: ASTHMA
     Route: 058
  2. XOLAIR [Suspect]
     Route: 058
     Dates: start: 201309
  3. SALBUTAMOL [Concomitant]
  4. MONTELUKAST [Concomitant]
  5. LIDOCAINE HYDROCHLORIDE [Concomitant]
  6. TRAZODONE [Concomitant]
  7. ACETAMINOPHEN [Concomitant]
  8. METHOCARBAMOL [Concomitant]

REACTIONS (3)
  - Asthma [Unknown]
  - Mental disorder [Not Recovered/Not Resolved]
  - Asphyxia [Not Recovered/Not Resolved]
